FAERS Safety Report 19905058 (Version 3)
Quarter: 2024Q3

REPORT INFORMATION
  Report Type: Report from Study
  Country: FR (occurrence: FR)
  Receive Date: 20210930
  Receipt Date: 20240701
  Transmission Date: 20241016
  Serious: Yes (Death, Life-Threatening)
  Sender: SERVIER
  Company Number: FR-SERVIER-S21010565

PATIENT

DRUGS (7)
  1. PEGASPARGASE [Suspect]
     Active Substance: PEGASPARGASE
     Indication: Acute lymphocytic leukaemia
     Dosage: 3800 IU, D12
     Route: 042
     Dates: start: 20210831, end: 20210831
  2. VINCRISTINE SULFATE [Suspect]
     Active Substance: VINCRISTINE SULFATE
     Indication: Acute lymphocytic leukaemia
     Dosage: 2 MG, D8, D15, D22
     Route: 042
     Dates: start: 20210827, end: 20210910
  3. DAUNORUBICIN HYDROCHLORIDE [Suspect]
     Active Substance: DAUNORUBICIN HYDROCHLORIDE
     Indication: Acute lymphocytic leukaemia
     Dosage: 46 MG, D8, D15, D22
     Route: 042
     Dates: start: 20210827, end: 20210910
  4. CYTARABINE [Suspect]
     Active Substance: CYTARABINE
     Indication: Acute lymphocytic leukaemia
     Dosage: 30 MG, D13, D24
     Route: 037
     Dates: start: 20210901, end: 20210913
  5. METHOTREXATE [Suspect]
     Active Substance: METHOTREXATE
     Indication: Acute lymphocytic leukaemia
     Dosage: 15 MG, D13, D24
     Route: 037
     Dates: start: 20210901, end: 20210913
  6. HYDROCORTISONE [Suspect]
     Active Substance: HYDROCORTISONE\HYDROCORTISONE ACETATE
     Indication: Acute lymphocytic leukaemia
     Dosage: 15 MG, D13, D24
     Route: 037
     Dates: start: 20210901, end: 20210913
  7. PREDNISOLONE [Suspect]
     Active Substance: PREDNISOLONE
     Indication: Acute lymphocytic leukaemia
     Dosage: 95 MG, D8 TO D28
     Route: 048
     Dates: start: 20210827, end: 20210915

REACTIONS (2)
  - Sepsis [Fatal]
  - Encephalitis bacterial [Fatal]

NARRATIVE: CASE EVENT DATE: 20210915
